FAERS Safety Report 8984557 (Version 1)
Quarter: 2012Q4

REPORT INFORMATION
  Report Type: 
  Country: US (occurrence: US)
  Receive Date: 20121226
  Receipt Date: 20121226
  Transmission Date: 20130627
  Serious: Yes (Hospitalization)
  Sender: FDA-Public Use
  Company Number: US-BAYER-2012-133785

PATIENT
  Age: 61 Year
  Sex: Male

DRUGS (6)
  1. CIPROFLOXACIN [Suspect]
     Indication: SEPSIS
  2. CIPROFLOXACIN [Suspect]
     Indication: VENOUS THROMBOSIS
  3. VANCOMYCIN [Suspect]
     Indication: SEPSIS
  4. VANCOMYCIN [Suspect]
     Indication: VENOUS THROMBOSIS
  5. CEFEPIME [Suspect]
     Indication: SEPSIS
  6. CEFEPIME [Suspect]
     Indication: VENOUS THROMBOEMBOLISM

REACTIONS (2)
  - Bacteraemia [None]
  - Drug ineffective [None]
